FAERS Safety Report 20343273 (Version 1)
Quarter: 2022Q1

REPORT INFORMATION
  Report Type: Spontaneous
  Country: CN (occurrence: CN)
  Receive Date: 20220117
  Receipt Date: 20220117
  Transmission Date: 20220423
  Serious: Yes (Other)
  Sender: FDA-Public Use
  Company Number: CN-BAXTER-2022BAX000944

PATIENT
  Age: 14 Year
  Sex: Male
  Weight: 54 kg

DRUGS (5)
  1. CYCLOPHOSPHAMIDE [Suspect]
     Active Substance: CYCLOPHOSPHAMIDE
     Indication: Acute lymphocytic leukaemia
     Dosage: CYCLOPHOSPHAMIDE + (4:1) GLUCOSE AND SODIUM CHLORIDE 250 ML
     Route: 041
     Dates: start: 20211214, end: 20211214
  2. DEXTROSE\SODIUM CHLORIDE [Suspect]
     Active Substance: DEXTROSE\SODIUM CHLORIDE
     Indication: Medication dilution
     Dosage: CYCLOPHOSPHAMIDE 1.6 GRAM + (4:1) GLUCOSE AND SODIUM CHLORIDE (250 ML)
     Route: 041
     Dates: start: 20211214, end: 20211214
  3. DEXTROSE\SODIUM CHLORIDE [Suspect]
     Active Substance: DEXTROSE\SODIUM CHLORIDE
     Dosage: CYTARABINE 1.62 GRAM + (4:1) GLUCOSE AND SODIUM CHLORIDE (250 ML)
     Route: 041
     Dates: start: 20211214, end: 20211217
  4. CYTARABINE [Suspect]
     Active Substance: CYTARABINE
     Indication: Acute lymphocytic leukaemia
     Dosage: CYTARABINE 1.62 G + (4:1) GLUCOSE AND SODIUM CHLORIDE 250 ML
     Route: 041
     Dates: start: 20211214, end: 20211217
  5. MERCAPTOPURINE [Suspect]
     Active Substance: MERCAPTOPURINE
     Indication: Acute lymphocytic leukaemia
     Route: 048
     Dates: start: 20211214, end: 20211220

REACTIONS (1)
  - Myelosuppression [Recovering/Resolving]

NARRATIVE: CASE EVENT DATE: 20211224
